FAERS Safety Report 18657237 (Version 2)
Quarter: 2021Q4

REPORT INFORMATION
  Report Type: Report from Study
  Country: US (occurrence: US)
  Receive Date: 20201223
  Receipt Date: 20211201
  Transmission Date: 20220303
  Serious: Yes (Hospitalization, Other)
  Sender: FDA-Public Use
  Company Number: US-TAIHO ONCOLOGY INC-EU-2020-04361

PATIENT
  Age: 59 Year
  Sex: Male
  Weight: 56.750 kg

DRUGS (5)
  1. LONSURF [Suspect]
     Active Substance: TIPIRACIL HYDROCHLORIDE\TRIFLURIDINE
     Indication: Colorectal cancer metastatic
     Dosage: CYCLE UNKNOWN
     Route: 048
     Dates: start: 20201123
  2. STIVARGA [Suspect]
     Active Substance: REGORAFENIB
     Indication: Colon cancer
     Dates: start: 20201118
  3. TYLENOL [Concomitant]
     Active Substance: ACETAMINOPHEN
  4. PYRIDIUM [Concomitant]
     Active Substance: PHENAZOPYRIDINE
  5. DILANTIN [Concomitant]
     Active Substance: PHENYTOIN

REACTIONS (5)
  - Melaena [Unknown]
  - Full blood count abnormal [Unknown]
  - Blood loss anaemia [Unknown]
  - Fluid retention [Unknown]
  - Abdominal discomfort [Unknown]

NARRATIVE: CASE EVENT DATE: 20201201
